FAERS Safety Report 9767596 (Version 1)
Quarter: 2013Q4

REPORT INFORMATION
  Report Type: Report from Study
  Country: BR (occurrence: BR)
  Receive Date: 20131217
  Receipt Date: 20131217
  Transmission Date: 20140711
  Serious: Yes (Death, Other)
  Sender: FDA-Public Use
  Company Number: PHHY2013BR146537

PATIENT
  Age: 40 Year
  Sex: Male
  Weight: 60 kg

DRUGS (2)
  1. AFINITOR [Suspect]
     Indication: HEPATIC MASS
     Dosage: 5 MG, TID
  2. CARVEDIOL [Concomitant]
     Indication: CARDIAC DISORDER

REACTIONS (7)
  - Hepatic cancer [Fatal]
  - Lung neoplasm malignant [Fatal]
  - Circulatory collapse [Fatal]
  - Ascites [Fatal]
  - Respiratory failure [Fatal]
  - Cardiac disorder [Unknown]
  - Pneumonia [Unknown]
